FAERS Safety Report 15324417 (Version 1)
Quarter: 2018Q3

REPORT INFORMATION
  Report Type: Spontaneous
  Country: US (occurrence: US)
  Receive Date: 20180822
  Receipt Date: 20180822
  Transmission Date: 20181010
  Serious: Yes (Hospitalization)
  Sender: FDA-Public Use
  Company Number: None

PATIENT
  Age: 37 Year
  Sex: Female
  Weight: 56.7 kg

DRUGS (1)
  1. ALPRAZOLAM 1MG TABLETS [Suspect]
     Active Substance: ALPRAZOLAM
     Indication: INSOMNIA
     Route: 048
     Dates: start: 20130605

REACTIONS (8)
  - Headache [None]
  - Mental status changes [None]
  - Tremor [None]
  - Withdrawal syndrome [None]
  - Fatigue [None]
  - Dry mouth [None]
  - Vision blurred [None]
  - Asthenia [None]

NARRATIVE: CASE EVENT DATE: 20180820
